FAERS Safety Report 5777439-5 (Version None)
Quarter: 2008Q2

REPORT INFORMATION
  Report Type: 
  Country: None (occurrence: None)
  Receive Date: 20080618
  Receipt Date: 20080612
  Transmission Date: 20081010
  Serious: Yes (Hospitalization)
  Sender: FDA-Public Use
  Company Number: US-SANOFI-SYNTHELABO-D01200804394

PATIENT
  Sex: Female
  Weight: 78.6 kg

DRUGS (20)
  1. LEVAQUIN [Concomitant]
     Route: 048
  2. FERROUS SULFATE TAB [Concomitant]
     Route: 048
  3. MELATONIN [Concomitant]
     Route: 048
  4. CALCIUM [Concomitant]
     Route: 048
  5. TYLENOL [Concomitant]
     Route: 048
  6. PROZAC [Concomitant]
     Route: 048
  7. COMBIVENT [Concomitant]
     Route: 055
  8. ADVAIR DISKUS 100/50 [Concomitant]
     Route: 055
  9. NASONEX [Concomitant]
     Route: 045
  10. ALLEGRA [Concomitant]
     Route: 048
  11. AMBIEN [Concomitant]
     Route: 048
  12. ESTRADIOL [Concomitant]
     Route: 048
  13. PREVACID [Concomitant]
     Route: 048
  14. BISOPROLOL FUMARATE [Concomitant]
     Route: 048
  15. LIPITOR [Concomitant]
     Route: 048
  16. FLUOROURACIL [Suspect]
     Dosage: 400 MG/M?, IV BOLUS D1+D2 FOLLOWED BY 5-FU 2400 MG/M? OVER 46-HOUR CONTINUOUS INFUSION.
     Route: 042
     Dates: start: 20080605, end: 20080605
  17. OXALIPLATIN [Suspect]
     Route: 042
     Dates: start: 20080605, end: 20080605
  18. SR57746 OR PLACEBO [Suspect]
     Indication: NEUROLOGICAL SYMPTOM
     Route: 048
     Dates: start: 20080414, end: 20080609
  19. AVASTIN [Suspect]
     Dates: start: 20080605, end: 20080605
  20. LEUCOVORIN CALCIUM [Suspect]
     Route: 042
     Dates: start: 20080605, end: 20080605

REACTIONS (1)
  - ATRIAL FIBRILLATION [None]
